FAERS Safety Report 19798043 (Version 1)
Quarter: 2021Q3

REPORT INFORMATION
  Report Type: Spontaneous
  Country: US (occurrence: US)
  Receive Date: 20210905
  Receipt Date: 20210905
  Transmission Date: 20211014
  Serious: Yes (Hospitalization)
  Sender: FDA-Public Use
  Company Number: None

PATIENT
  Age: 37 Year
  Sex: Female
  Weight: 49.9 kg

DRUGS (4)
  1. VITAMIN D [Concomitant]
     Active Substance: VITAMIN D NOS
  2. PARAGARD T 380A [Suspect]
     Active Substance: COPPER
  3. LEVOCETIRIZINE [Concomitant]
     Active Substance: LEVOCETIRIZINE
  4. CALCIUM [Concomitant]
     Active Substance: CALCIUM

REACTIONS (3)
  - Device breakage [None]
  - Complication of device removal [None]
  - Embedded device [None]

NARRATIVE: CASE EVENT DATE: 20191129
